FAERS Safety Report 12642603 (Version 1)
Quarter: 2016Q3

REPORT INFORMATION
  Report Type: Spontaneous
  Country: US (occurrence: US)
  Receive Date: 20160810
  Receipt Date: 20160810
  Transmission Date: 20161109
  Serious: No
  Sender: FDA-Public Use
  Company Number: US-ASTRAZENECA-2016SE68247

PATIENT
  Age: 18102 Day
  Sex: Female
  Weight: 77.1 kg

DRUGS (9)
  1. GLIPIZIDE. [Concomitant]
     Active Substance: GLIPIZIDE
     Indication: TYPE 2 DIABETES MELLITUS
     Route: 048
     Dates: start: 201605
  2. DIABETIC VITAMIN PACK [Concomitant]
     Indication: VITAMIN B COMPLEX DEFICIENCY
     Dosage: 8 PILLS A DAY
     Route: 048
  3. TYLENOL [Concomitant]
     Active Substance: ACETAMINOPHEN
     Indication: HEADACHE
     Route: 048
  4. OMEPRAZOLE. [Suspect]
     Active Substance: OMEPRAZOLE
     Indication: GASTROOESOPHAGEAL REFLUX DISEASE
     Dosage: OFF AND ON FOR 2 YEARS
     Route: 048
  5. OMEPRAZOLE. [Suspect]
     Active Substance: OMEPRAZOLE
     Indication: GASTROOESOPHAGEAL REFLUX DISEASE
     Route: 048
  6. IBUPROFEN. [Concomitant]
     Active Substance: IBUPROFEN
     Indication: PAIN
     Route: 048
  7. TYLENOL [Concomitant]
     Active Substance: ACETAMINOPHEN
     Indication: PAIN
     Route: 048
  8. IBUPROFEN. [Concomitant]
     Active Substance: IBUPROFEN
     Indication: HEADACHE
     Route: 048
  9. BYETTA [Suspect]
     Active Substance: EXENATIDE
     Indication: TYPE 2 DIABETES MELLITUS
     Dosage: 250 MCG/1.2 ML , 5MCG PEN TWICE A DAY
     Route: 058
     Dates: start: 20160613

REACTIONS (5)
  - Injection site pain [Unknown]
  - Drug dose omission [Unknown]
  - Circumstance or information capable of leading to medication error [Unknown]
  - Blood glucose increased [Unknown]
  - Product quality issue [Unknown]

NARRATIVE: CASE EVENT DATE: 20160615
